FAERS Safety Report 17080253 (Version 1)
Quarter: 2019Q4

REPORT INFORMATION
  Report Type: Report from Study
  Country: NL (occurrence: NL)
  Receive Date: 20191127
  Receipt Date: 20191127
  Transmission Date: 20200122
  Serious: Yes (Other)
  Sender: FDA-Public Use
  Company Number: NL-TEVA-2019-NL-1141927

PATIENT
  Age: 45 Year
  Sex: Female

DRUGS (2)
  1. MESALAZINE ORAAL [Concomitant]
     Dosage: 2G, 2X/D
     Route: 048
     Dates: start: 20150204, end: 20150507
  2. MESALAZINE [Suspect]
     Active Substance: MESALAMINE
     Indication: COLITIS ULCERATIVE
     Dosage: 500MG, 1X/D
     Dates: start: 20150324, end: 20150507

REACTIONS (1)
  - Respiratory tract infection [Recovered/Resolved]

NARRATIVE: CASE EVENT DATE: 20150507
